FAERS Safety Report 11643839 (Version 1)
Quarter: 2015Q4

REPORT INFORMATION
  Report Type: Spontaneous
  Country: US (occurrence: US)
  Receive Date: 20151020
  Receipt Date: 20151020
  Transmission Date: 20160304
  Serious: No
  Sender: FDA-Public Use
  Company Number: US-BAYER-2015-447514

PATIENT
  Age: 79 Year
  Sex: Female

DRUGS (2)
  1. VITAMIN D [Concomitant]
     Active Substance: CHOLECALCIFEROL
     Dosage: UNK
  2. CLARITIN [Suspect]
     Active Substance: LORATADINE
     Indication: HEADACHE
     Dosage: 1 DF, ONCE
     Route: 048
     Dates: start: 20151015, end: 20151016

REACTIONS (2)
  - Nausea [Not Recovered/Not Resolved]
  - Product use issue [Unknown]
